FAERS Safety Report 6612411-4 (Version None)
Quarter: 2010Q1

REPORT INFORMATION
  Report Type: 
  Country: None (occurrence: None)
  Receive Date: 20100303
  Receipt Date: 20100218
  Transmission Date: 20100710
  Serious: Yes (Other)
  Sender: FDA-Public Use
  Company Number: PHEH2008US08948

PATIENT
  Sex: Female

DRUGS (40)
  1. ZOMETA [Suspect]
     Indication: MULTIPLE MYELOMA
     Dosage: UNK
  2. AREDIA [Suspect]
     Indication: MULTIPLE MYELOMA
  3. CYCLOBENZAPRINE [Concomitant]
     Dosage: 10 MG/ 1-2 TABLETS 4X DAILY
  4. DOCUSATE SODIUM W/SENNA [Concomitant]
  5. LORAZEPAM [Concomitant]
  6. VIOXX [Concomitant]
  7. POTASSIUM [Concomitant]
  8. WELLBUTRIN SR [Concomitant]
  9. FLURBIPROFEN [Concomitant]
     Dosage: 100 MG TABLETS
  10. TRAMADOL HCL [Concomitant]
     Dosage: 50 MG TABLETS
  11. CHLORHEXIDINE DENTAL ^ACO^ [Concomitant]
     Dosage: UNK
  12. CLINDAMYCIN [Concomitant]
     Dosage: 150 MG TABLETS
  13. CEPHALEXIN [Concomitant]
     Dosage: 500 MG CAPSULES
  14. METHOCARBAMOL [Concomitant]
     Dosage: 750 MG TABLETS
  15. NORTRIPTYLINE HCL [Concomitant]
     Dosage: 250 MG TABLETS
  16. CHEMOTHERAPEUTICS NOS [Concomitant]
     Dosage: UNK
  17. MORPHINE SULFATE [Concomitant]
     Indication: PAIN
     Dosage: 30 MG / 1-2 TABLETS 4 X DAILY
  18. THALOMID [Concomitant]
     Dosage: 50 MG
  19. PREVACID [Concomitant]
     Dosage: UNK
  20. ZITHROMAX [Concomitant]
     Dosage: UNK
  21. METOCLOPRAMIDE HYDROCHLORIDE [Concomitant]
     Dosage: UNK
  22. PROCHLORPERAZINE [Concomitant]
     Dosage: UNK
  23. QUININE SULFATE [Concomitant]
     Dosage: UNK
  24. ZOLOFT [Concomitant]
     Dosage: UNK
  25. ALLOPURINOL [Concomitant]
     Dosage: UNK
  26. VALTREX [Concomitant]
     Dosage: 500 MG
  27. PROTONIX [Concomitant]
     Dosage: UNK
  28. ROXICODONE [Concomitant]
     Dosage: UNK
  29. ALUMINIUM HYDROCHLORIDE [Concomitant]
     Dosage: UNK
  30. NICODERM [Concomitant]
     Dosage: UNK
  31. CERTAGEN [Concomitant]
     Dosage: UNK
  32. DEXAMETHASONE [Concomitant]
     Dosage: UNK
  33. DAPSONE [Concomitant]
     Dosage: UNK
  34. NEPHROCAPS [Concomitant]
     Dosage: UNK
  35. PHOSLO [Concomitant]
     Dosage: UNK
  36. MIRALAX [Concomitant]
     Dosage: UNK
  37. METHADONE [Concomitant]
     Dosage: UNK
  38. LEXAPRO [Concomitant]
     Dosage: UNK
  39. DECADRON [Concomitant]
     Dosage: 40 MG / QD
  40. PERI-COLACE [Concomitant]
     Dosage: UNK

REACTIONS (22)
  - ABSCESS DRAINAGE [None]
  - ALPHA HAEMOLYTIC STREPTOCOCCAL INFECTION [None]
  - ANAEMIA [None]
  - ANHEDONIA [None]
  - ANXIETY [None]
  - APHERESIS [None]
  - BONE DISORDER [None]
  - DIALYSIS [None]
  - DISABILITY [None]
  - FISTULA DISCHARGE [None]
  - GINGIVAL OPERATION [None]
  - INJURY [None]
  - JAW OPERATION [None]
  - MYOFASCIAL PAIN SYNDROME [None]
  - NECK MASS [None]
  - OSTEOMYELITIS [None]
  - OSTEONECROSIS [None]
  - PAIN [None]
  - RENAL FAILURE CHRONIC [None]
  - SPINAL OSTEOARTHRITIS [None]
  - SUBMANDIBULAR MASS [None]
  - TOOTH EXTRACTION [None]
